FAERS Safety Report 5741337-3 (Version None)
Quarter: 2008Q2

REPORT INFORMATION
  Report Type: 
  Country: None (occurrence: None)
  Receive Date: 20080514
  Receipt Date: 20080429
  Transmission Date: 20081010
  Serious: Yes (Life-Threatening, Hospitalization)
  Sender: FDA-Public Use
  Company Number: 8032411

PATIENT
  Age: 68 Year
  Sex: Male
  Weight: 91 kg

DRUGS (5)
  1. KEPPRA [Suspect]
     Indication: EPILEPSY
     Dosage: 500 MG 2/D PO
     Route: 048
     Dates: start: 20070507, end: 20070629
  2. KEPPRA [Suspect]
     Indication: EPILEPSY
     Dosage: 625 MG 2 /D PO
     Route: 048
     Dates: start: 20070629, end: 20071129
  3. KEPPRA [Suspect]
     Indication: EPILEPSY
     Dosage: 750 MG 2/D PO
     Route: 048
     Dates: start: 20071129
  4. VALPROATE SODIUM [Concomitant]
  5. CARBAMAZEPINE [Concomitant]

REACTIONS (2)
  - GENERAL PHYSICAL HEALTH DETERIORATION [None]
  - MYOCARDIAL INFARCTION [None]
